FAERS Safety Report 19108567 (Version 1)
Quarter: 2021Q2

REPORT INFORMATION
  Report Type: Spontaneous
  Country: GB (occurrence: GB)
  Receive Date: 20210408
  Receipt Date: 20210408
  Transmission Date: 20210717
  Serious: Yes (Disabling)
  Sender: FDA-Public Use
  Company Number: GB-ACCORD-222101

PATIENT
  Age: 78 Year
  Sex: Female
  Weight: 68 kg

DRUGS (9)
  1. VENTOLIN [Concomitant]
     Active Substance: ALBUTEROL SULFATE
     Dosage: ONE OR TWO PUFFS TO BE INHALED UP TO FOUR TIMES
     Dates: start: 20200115
  2. ATORVASTATIN [Concomitant]
     Active Substance: ATORVASTATIN
     Dosage: ONE TO BE TAKEN EACH DAY
     Dates: start: 20200903
  3. OMEPRAZOLE. [Concomitant]
     Active Substance: OMEPRAZOLE
     Dosage: TWICE A DAY
     Dates: start: 20191231
  4. AMLODIPINE [Suspect]
     Active Substance: AMLODIPINE BESYLATE
     Indication: PRODUCT USED FOR UNKNOWN INDICATION
     Dates: start: 20210325
  5. COLECALCIFEROL [Concomitant]
     Active Substance: CHOLECALCIFEROL
     Dates: start: 20200131
  6. HYPROMELLOSE/HYPROMELLOSE PHTHALATE [Concomitant]
     Active Substance: HYPROMELLOSE PHTHALATE\HYPROMELLOSES
     Dosage: ONE DROP EACH EYE AS OFTEN AS REQUIRED
     Dates: start: 20200217
  7. LEVOTHYROXINE. [Concomitant]
     Active Substance: LEVOTHYROXINE
     Dosage: TAKE ONE EACH MORNING
     Dates: start: 20191108
  8. AMLODIPINE [Suspect]
     Active Substance: AMLODIPINE BESYLATE
     Indication: PRODUCT USED FOR UNKNOWN INDICATION
     Dates: start: 20210126, end: 20210325
  9. GAVISCON ADVANCE [Concomitant]
     Active Substance: POTASSIUM BICARBONATE\SODIUM ALGINATE
     Dosage: TAKE ONE TO TWO 5ML SPOONFULS FOUR TIMES A DAY
     Dates: start: 20201217

REACTIONS (1)
  - Vision blurred [Recovered/Resolved]

NARRATIVE: CASE EVENT DATE: 20210325
